FAERS Safety Report 22230188 (Version 4)
Quarter: 2023Q2

REPORT INFORMATION
  Report Type: Report from Study
  Country: CN (occurrence: CN)
  Receive Date: 20230419
  Receipt Date: 20230531
  Transmission Date: 20230721
  Serious: Yes (Hospitalization)
  Sender: FDA-Public Use
  Company Number: CN-ANTENGENE-20230401606

PATIENT
  Age: 58 Year
  Sex: Male
  Weight: 64.5 kg

DRUGS (4)
  1. SELINEXOR [Suspect]
     Active Substance: SELINEXOR
     Indication: Plasma cell myeloma
     Dosage: 100 MG, WEEKLY
     Route: 048
     Dates: start: 20230208, end: 20230407
  2. SELINEXOR [Suspect]
     Active Substance: SELINEXOR
     Dosage: 80 MG, WEEKLY
     Route: 048
     Dates: start: 202304
  3. BORTEZOMIB [Suspect]
     Active Substance: BORTEZOMIB
     Indication: Plasma cell myeloma
     Dosage: 1.3 MG/M2, WEEKLY
     Route: 058
     Dates: start: 20230208
  4. DEXAMETHASONE [Suspect]
     Active Substance: DEXAMETHASONE
     Indication: Plasma cell myeloma
     Dosage: 20 MG, BIW
     Route: 048
     Dates: start: 20230208

REACTIONS (2)
  - Platelet count decreased [Recovered/Resolved]
  - Decreased appetite [Recovering/Resolving]

NARRATIVE: CASE EVENT DATE: 20230407
